FAERS Safety Report 11114143 (Version 3)
Quarter: 2015Q2

REPORT INFORMATION
  Report Type: Report from Study
  Country: CA (occurrence: CA)
  Receive Date: 20150514
  Receipt Date: 20150609
  Transmission Date: 20150821
  Serious: Yes (Hospitalization, Other)
  Sender: FDA-Public Use
  Company Number: PHHY2015CA055879

PATIENT
  Age: 86 Year
  Sex: Male

DRUGS (2)
  1. SANDOSTATIN [Suspect]
     Active Substance: OCTREOTIDE ACETATE
     Indication: NEUROENDOCRINE TUMOUR
     Dosage: 50 MCG, TEST DOSE ONCE
     Route: 058
     Dates: start: 20150423, end: 20150423
  2. SANDOSTATIN LAR DEPOT [Suspect]
     Active Substance: OCTREOTIDE ACETATE
     Indication: NEUROENDOCRINE TUMOUR
     Dosage: 30 MG, EVERY 4 WEEKS
     Route: 030

REACTIONS (11)
  - Infection [Unknown]
  - Dizziness [Unknown]
  - Consciousness fluctuating [Unknown]
  - Gout [Unknown]
  - Heart rate decreased [Unknown]
  - Unresponsive to stimuli [Unknown]
  - Asthenia [Unknown]
  - Hypotension [Unknown]
  - Pyrexia [Unknown]
  - Blood pressure systolic increased [Unknown]
  - Postoperative wound infection [Unknown]

NARRATIVE: CASE EVENT DATE: 20150426
